FAERS Safety Report 13473858 (Version 1)
Quarter: 2017Q2

REPORT INFORMATION
  Report Type: Spontaneous
  Country: US (occurrence: US)
  Receive Date: 20170424
  Receipt Date: 20170424
  Transmission Date: 20170830
  Serious: No
  Sender: FDA-Public Use
  Company Number: US-ARBOR PHARMACEUTICALS, LLC-US-2017ARB000276

PATIENT
  Sex: Male

DRUGS (2)
  1. CLONIDINE. [Concomitant]
     Active Substance: CLONIDINE
     Indication: BLOOD PRESSURE MANAGEMENT
     Dosage: 1 DF, TID, AS NEEDED
  2. EDARBI [Suspect]
     Active Substance: AZILSARTAN KAMEDOXOMIL
     Indication: PRODUCT USED FOR UNKNOWN INDICATION
     Dosage: 80 MG, QD
     Route: 048
     Dates: start: 20170221

REACTIONS (2)
  - Sinus congestion [Unknown]
  - Cough [Unknown]

NARRATIVE: CASE EVENT DATE: 201702
